FAERS Safety Report 9752523 (Version 4)
Quarter: 2014Q1

REPORT INFORMATION
  Report Type: Spontaneous
  Country: GB (occurrence: None)
  Receive Date: 20131211
  Receipt Date: 20140129
  Transmission Date: 20141002
  Serious: Yes (Hospitalization, Other)
  Sender: FDA-Public Use
  Company Number: AUR-APL-2013-10236

PATIENT
  Age: 62 Year
  Sex: Female

DRUGS (5)
  1. PERINDOPRIL [Suspect]
     Indication: PRODUCT USED FOR UNKNOWN INDICATION
  2. LYRICA [Suspect]
     Indication: NEURALGIA
     Dosage: 200MG (100MG 2 IN 1 D)
  3. FUROSEMIDE (FUROSEMIDE) [Concomitant]
  4. LIDOCAINE (LIDOCAINE) [Concomitant]
  5. DABIGATRAN (DABIGATRAN) (DABIGA TRAN) [Concomitant]

REACTIONS (12)
  - Cardiac failure congestive [None]
  - Cardiomyopathy [None]
  - Nerve injury [None]
  - Hyperaesthesia [None]
  - Skin irritation [None]
  - Skin burning sensation [None]
  - Depression [None]
  - Memory impairment [None]
  - Disturbance in attention [None]
  - Drug interaction [None]
  - General physical condition abnormal [None]
  - Atrial fibrillation [None]
